FAERS Safety Report 8584653-2 (Version None)
Quarter: 2012Q3

REPORT INFORMATION
  Report Type: 
  Country: None (occurrence: None)
  Receive Date: 20120810
  Receipt Date: 20120731
  Transmission Date: 20120928
  Serious: Yes (Hospitalization)
  Sender: FDA-Public Use
  Company Number: US-BAYER-2012-046502

PATIENT
  Age: 33 Year
  Sex: Female

DRUGS (5)
  1. YASMIN [Suspect]
  2. XANAX [Concomitant]
     Indication: DEPRESSION
  3. YAZ [Suspect]
  4. HYPNOTICS AND SEDATIVES [Concomitant]
  5. XANAX [Concomitant]
     Indication: ANXIETY
     Dosage: UNK UNK, PRN

REACTIONS (8)
  - PAIN [None]
  - ANXIETY [None]
  - QUALITY OF LIFE DECREASED [None]
  - PULMONARY EMBOLISM [None]
  - EMOTIONAL DISTRESS [None]
  - FEAR [None]
  - INJURY [None]
  - ANHEDONIA [None]
